FAERS Safety Report 20126836 (Version 1)
Quarter: 2021Q4

REPORT INFORMATION
  Report Type: Spontaneous
  Country: FI (occurrence: FI)
  Receive Date: 20211129
  Receipt Date: 20211129
  Transmission Date: 20220303
  Serious: Yes (Other)
  Sender: FDA-Public Use
  Company Number: FI-PFIZER INC-202101082312

PATIENT

DRUGS (6)
  1. AVIBACTAM SODIUM\CEFTAZIDIME [Suspect]
     Active Substance: AVIBACTAM SODIUM\CEFTAZIDIME
     Indication: Klebsiella infection
     Dosage: UNK
  2. AVIBACTAM SODIUM\CEFTAZIDIME [Suspect]
     Active Substance: AVIBACTAM SODIUM\CEFTAZIDIME
     Dosage: UNK
  3. SULFAMETHOXAZOLE AND TRIMETHOPRIM [Concomitant]
     Active Substance: SULFAMETHOXAZOLE\TRIMETHOPRIM
     Indication: Klebsiella infection
     Dosage: UNK
  4. COLISTIN [Concomitant]
     Active Substance: COLISTIN
     Indication: Klebsiella infection
     Dosage: UNK
  5. TIGECYCLINE [Concomitant]
     Active Substance: TIGECYCLINE
     Indication: Klebsiella infection
     Dosage: UNK
  6. FOSFOMYCIN [Concomitant]
     Active Substance: FOSFOMYCIN
     Indication: Klebsiella infection
     Dosage: UNK

REACTIONS (1)
  - Pathogen resistance [Unknown]
